FAERS Safety Report 21002990 (Version 1)
Quarter: 2022Q2

REPORT INFORMATION
  Report Type: Spontaneous
  Country: CA (occurrence: CA)
  Receive Date: 20220624
  Receipt Date: 20220624
  Transmission Date: 20220720
  Serious: Yes (Other)
  Sender: FDA-Public Use
  Company Number: CA-GLAXOSMITHKLINE-CACH2022009093

PATIENT

DRUGS (1)
  1. ADVIL LIQUI-GELS [Suspect]
     Active Substance: IBUPROFEN
     Indication: Sciatica
     Dosage: UNK

REACTIONS (10)
  - Haemorrhage [Unknown]
  - Contusion [Unknown]
  - Condition aggravated [Unknown]
  - Hypersensitivity [Unknown]
  - Pruritus [Unknown]
  - Sneezing [Unknown]
  - Drug effective for unapproved indication [Unknown]
  - Incorrect dosage administered [Unknown]
  - Product use in unapproved indication [Unknown]
  - Expired product administered [Unknown]
